FAERS Safety Report 13478270 (Version 1)
Quarter: 2017Q2

REPORT INFORMATION
  Report Type: Report from Study
  Country: US (occurrence: US)
  Receive Date: 20170425
  Receipt Date: 20170425
  Transmission Date: 20170830
  Serious: Yes (Death)
  Sender: FDA-Public Use
  Company Number: US-ROCHE-1880224

PATIENT
  Age: 55 Year
  Sex: Male
  Weight: 107 kg

DRUGS (1)
  1. VISMODEGIB [Suspect]
     Active Substance: VISMODEGIB
     Indication: COLORECTAL CANCER
     Dosage: CYCLE WAS 28 DAYS?LAST DOSE PRIOR TO SAE WAS 27/SEP/2016
     Route: 048
     Dates: start: 20160924

REACTIONS (1)
  - Sepsis [Fatal]

NARRATIVE: CASE EVENT DATE: 20160928
